FAERS Safety Report 9059408 (Version 2)
Quarter: 2013Q1

REPORT INFORMATION
  Report Type: Spontaneous
  Country: SG (occurrence: SG)
  Receive Date: 20130211
  Receipt Date: 20130218
  Transmission Date: 20140127
  Serious: Yes (Hospitalization)
  Sender: FDA-Public Use
  Company Number: SG-GLAXOSMITHKLINE-B0866248A

PATIENT
  Age: 64 Year
  Sex: Female

DRUGS (3)
  1. PAZOPANIB [Suspect]
     Indication: OVARIAN CANCER
     Dosage: 400MG TWICE PER DAY
     Route: 048
     Dates: start: 20121212, end: 20130111
  2. HERBAL MEDICATION [Concomitant]
     Dates: end: 20130111
  3. CONCURRENT MEDICATIONS [Concomitant]
     Dates: end: 20130111

REACTIONS (5)
  - Diarrhoea [Not Recovered/Not Resolved]
  - Abdominal pain [Unknown]
  - Pulmonary embolism [Unknown]
  - Dehydration [Unknown]
  - Gastrointestinal fistula [Unknown]
